FAERS Safety Report 7142726-5 (Version None)
Quarter: 2010Q4

REPORT INFORMATION
  Report Type: 
  Country: None (occurrence: None)
  Receive Date: 20101207
  Receipt Date: 20101129
  Transmission Date: 20110411
  Serious: Yes (Hospitalization, Disabling)
  Sender: FDA-Public Use
  Company Number: JP-ABBOTT-99P-087-0540558-00

PATIENT
  Sex: Female

DRUGS (5)
  1. LEUPRORELIN DEPOT [Suspect]
     Indication: BREAST CANCER METASTATIC
     Route: 058
     Dates: start: 19990517, end: 19991029
  2. LEUPRORELIN DEPOT [Suspect]
     Indication: METASTASES TO LUNG
  3. DOXIFLURIDINE [Concomitant]
     Indication: PRODUCT USED FOR UNKNOWN INDICATION
     Route: 065
     Dates: start: 19990517, end: 19991113
  4. DOXIFLURIDINE [Concomitant]
     Route: 065
     Dates: start: 19991224
  5. TAMOXIFEN CITRATE [Concomitant]
     Indication: PRODUCT USED FOR UNKNOWN INDICATION
     Route: 065
     Dates: start: 19990129, end: 19991113

REACTIONS (4)
  - CEREBRAL INFARCTION [None]
  - COMA [None]
  - CONVULSION [None]
  - TENOSYNOVITIS [None]
